FAERS Safety Report 18652525 (Version 2)
Quarter: 2022Q1

REPORT INFORMATION
  Report Type: Spontaneous
  Country: US (occurrence: US)
  Receive Date: 20201223
  Receipt Date: 20220201
  Transmission Date: 20220423
  Serious: Yes (Other)
  Sender: FDA-Public Use
  Company Number: US-SUN PHARMACEUTICAL INDUSTRIES LTD-2020R1-272401

PATIENT
  Age: 20 Month
  Sex: Male

DRUGS (2)
  1. IMATINIB [Suspect]
     Active Substance: IMATINIB
     Indication: Chordoma
     Dosage: UNK
     Route: 048
  2. ETOPOSIDE [Suspect]
     Active Substance: ETOPOSIDE
     Indication: Chordoma
     Dosage: 500 MILLIGRAM/SQ. METER,UNK
     Route: 065

REACTIONS (3)
  - Pyrexia [Unknown]
  - Pancytopenia [Unknown]
  - Neutropenia [Unknown]
